FAERS Safety Report 19644934 (Version 1)
Quarter: 2021Q3

REPORT INFORMATION
  Report Type: Spontaneous
  Country: IT (occurrence: IT)
  Receive Date: 20210802
  Receipt Date: 20210802
  Transmission Date: 20211014
  Serious: Yes (Hospitalization, Other)
  Sender: FDA-Public Use
  Company Number: IT-EPICPHARMA-IT-2021EPCLIT00774

PATIENT
  Age: 37 Year
  Sex: Female

DRUGS (4)
  1. ESTRADIOL. [Suspect]
     Active Substance: ESTRADIOL
     Indication: DRUG THERAPY
     Route: 065
  2. HEPARIN [Interacting]
     Active Substance: HEPARIN SODIUM
     Indication: EMBOLIC CEREBRAL INFARCTION
     Route: 065
  3. PROGESTERONE. [Suspect]
     Active Substance: PROGESTERONE
     Indication: PREGNANCY
     Route: 065
  4. WARFARIN [Interacting]
     Active Substance: WARFARIN
     Indication: EMBOLIC CEREBRAL INFARCTION
     Route: 065

REACTIONS (3)
  - Carotid artery dissection [Recovered/Resolved]
  - Ovarian hyperstimulation syndrome [Unknown]
  - Embolic cerebral infarction [Recovered/Resolved]
